FAERS Safety Report 5639597-2 (Version None)
Quarter: 2008Q1

REPORT INFORMATION
  Report Type: 
  Country: None (occurrence: None)
  Receive Date: 20080222
  Receipt Date: 20080212
  Transmission Date: 20080703
  Serious: Yes (Life-Threatening, Hospitalization)
  Sender: FDA-Public Use
  Company Number: 2008-00470

PATIENT
  Age: 64 Year
  Sex: Male
  Weight: 115.9 kg

DRUGS (2)
  1. VELCADE [Suspect]
     Indication: LYMPHOMA
     Dosage: 1.60 MG/M2
     Dates: start: 20080103, end: 20080110
  2. GEMCITABINE [Suspect]
     Indication: LYMPHOMA
     Dosage: 800.00 MG/M2
     Dates: start: 20080103, end: 20080110

REACTIONS (15)
  - CHILLS [None]
  - DIALYSIS [None]
  - DISEASE PROGRESSION [None]
  - FATIGUE [None]
  - HYPERHIDROSIS [None]
  - INFECTION [None]
  - LOSS OF CONSCIOUSNESS [None]
  - LYMPHOMA [None]
  - PNEUMONIA [None]
  - PYREXIA [None]
  - RENAL FAILURE [None]
  - SEPSIS [None]
  - SEPTIC SHOCK [None]
  - ULTRASOUND KIDNEY ABNORMAL [None]
  - VENTRICULAR FIBRILLATION [None]
